FAERS Safety Report 20335703 (Version 2)
Quarter: 2022Q1

REPORT INFORMATION
  Report Type: Spontaneous
  Country: FR (occurrence: None)
  Receive Date: 20220114
  Receipt Date: 20220121
  Transmission Date: 20220423
  Serious: Yes (Other)
  Sender: FDA-Public Use
  Company Number: 2022A020565

PATIENT
  Age: 17 Year
  Sex: Female

DRUGS (1)
  1. ESOMEPRAZOLE [Suspect]
     Active Substance: ESOMEPRAZOLE
     Indication: Abdominal pain
     Dosage: 20 MILLIGRAM, 1/DAY
     Route: 065
     Dates: start: 2020, end: 20211014

REACTIONS (2)
  - Blindness [Unknown]
  - Transaminases increased [Unknown]
